FAERS Safety Report 18097737 (Version 1)
Quarter: 2020Q3

REPORT INFORMATION
  Report Type: Spontaneous
  Country: JP (occurrence: JP)
  Receive Date: 20200731
  Receipt Date: 20200731
  Transmission Date: 20201103
  Serious: Yes (Other)
  Sender: FDA-Public Use
  Company Number: NVSC2020JP213355

PATIENT
  Age: 92 Year
  Sex: Female

DRUGS (3)
  1. RECLAST [Suspect]
     Active Substance: ZOLEDRONIC ACID
     Dosage: 5 MG, UNKNOWN
     Route: 041
     Dates: start: 20180606
  2. RECLAST [Suspect]
     Active Substance: ZOLEDRONIC ACID
     Dosage: 5 MG, UNKNOWN
     Route: 041
     Dates: start: 20190708
  3. RECLAST [Suspect]
     Active Substance: ZOLEDRONIC ACID
     Indication: PRODUCT USED FOR UNKNOWN INDICATION
     Dosage: 5 MG, UNKNOWN
     Route: 041
     Dates: start: 20170621

REACTIONS (1)
  - Compression fracture [Recovered/Resolved]

NARRATIVE: CASE EVENT DATE: 20190408
